FAERS Safety Report 19774111 (Version 2)
Quarter: 2021Q4

REPORT INFORMATION
  Report Type: Report from Study
  Country: FR (occurrence: None)
  Receive Date: 20210901
  Receipt Date: 20211112
  Transmission Date: 20220303
  Serious: Yes (Hospitalization)
  Sender: FDA-Public Use
  Company Number: FR-ROCHE-2899252

PATIENT
  Age: 68 Year
  Sex: Female
  Weight: 69 kg

DRUGS (4)
  1. ATEZOLIZUMAB [Suspect]
     Active Substance: ATEZOLIZUMAB
     Indication: Cervix carcinoma recurrent
     Dosage: ON 19/AUG/2021 RECEIVED LAST INFUSION
     Route: 042
     Dates: start: 20210819
  2. CARBOPLATIN [Suspect]
     Active Substance: CARBOPLATIN
     Indication: Cervix carcinoma recurrent
     Dosage: ON 19/AUG/2021, RECEIVED LAST DOSE
     Route: 042
     Dates: start: 20210819
  3. PACLITAXEL [Suspect]
     Active Substance: PACLITAXEL
     Indication: Cervix carcinoma recurrent
     Dosage: ON 19/AUG/2021, RECEIVED LAST DOSE
     Route: 042
     Dates: start: 20210819
  4. BISOPROLOL FUMARATE [Concomitant]
     Active Substance: BISOPROLOL FUMARATE
     Indication: Cardiac disorder
     Route: 048

REACTIONS (1)
  - Vomiting [Not Recovered/Not Resolved]

NARRATIVE: CASE EVENT DATE: 20210825
